FAERS Safety Report 11255654 (Version 3)
Quarter: 2015Q4

REPORT INFORMATION
  Report Type: Spontaneous
  Country: FR (occurrence: FR)
  Receive Date: 20150709
  Receipt Date: 20151230
  Transmission Date: 20160304
  Serious: Yes (Life-Threatening, Hospitalization, Other)
  Sender: FDA-Public Use
  Company Number: FR-BRISTOL-MYERS SQUIBB COMPANY-BMS-2015-044398

PATIENT
  Age: 48 Year
  Sex: Female
  Weight: 70 kg

DRUGS (15)
  1. METOPIRONE [Suspect]
     Active Substance: METYRAPONE
     Indication: PITUITARY-DEPENDENT CUSHING^S SYNDROME
     Dosage: 500 MG, TID
     Route: 065
     Dates: start: 20150508, end: 20150616
  2. LYSODREN [Suspect]
     Active Substance: MITOTANE
     Indication: CUSHING^S SYNDROME
     Dosage: 1.5 G, TID
     Route: 048
     Dates: start: 20150510, end: 20150616
  3. LYSODREN [Suspect]
     Active Substance: MITOTANE
     Dosage: 3 DF, QD
     Route: 048
  4. ALDACTONE [Suspect]
     Active Substance: SPIRONOLACTONE
     Indication: SUICIDE ATTEMPT
     Dosage: 1 UNK, UNK
     Route: 048
     Dates: start: 20150618
  5. KETOCONAZOLE. [Concomitant]
     Active Substance: KETOCONAZOLE
     Indication: PITUITARY-DEPENDENT CUSHING^S SYNDROME
     Dosage: 200 MG, BID
     Route: 065
     Dates: start: 201503, end: 20150616
  6. LEVOTHYROX [Concomitant]
     Active Substance: LEVOTHYROXINE
     Indication: PRODUCT USED FOR UNKNOWN INDICATION
     Dosage: 125 ?G, UNK
     Route: 065
     Dates: end: 20150616
  7. LYSODREN [Suspect]
     Active Substance: MITOTANE
     Indication: SUICIDE ATTEMPT
     Dosage: 200 DF, QD
     Route: 048
     Dates: start: 20150616, end: 20150616
  8. ALDACTONE [Suspect]
     Active Substance: SPIRONOLACTONE
     Indication: HYPERTENSION
     Dosage: 1 UNK, UNK
     Route: 048
     Dates: start: 20150616, end: 20150616
  9. XANAX [Suspect]
     Active Substance: ALPRAZOLAM
     Indication: SUICIDE ATTEMPT
     Dosage: 6 TAB, QD
     Route: 065
  10. DOSTINEX [Concomitant]
     Active Substance: CABERGOLINE
     Indication: HYPERCORTICOIDISM
     Dosage: 0.5 MG, UNK
     Route: 065
     Dates: start: 201405
  11. DOSTINEX [Concomitant]
     Active Substance: CABERGOLINE
     Dosage: 0.5 MG, UNK
     Route: 065
     Dates: start: 201503, end: 20150616
  12. KETOCONAZOLE. [Concomitant]
     Active Substance: KETOCONAZOLE
     Indication: HYPERCORTICOIDISM
     Dosage: 6 TAB, QD
     Route: 065
  13. PARACETAMOL [Suspect]
     Active Substance: ACETAMINOPHEN
     Indication: SUICIDE ATTEMPT
     Dosage: 16 G,QD
     Route: 048
     Dates: start: 20150616, end: 20150616
  14. METOPIRONE [Suspect]
     Active Substance: METYRAPONE
     Dosage: 100 DF, QD
     Route: 048
     Dates: start: 20150616, end: 20150616
  15. TEMERIT [Concomitant]
     Active Substance: NEBIVOLOL
     Indication: PRODUCT USED FOR UNKNOWN INDICATION
     Dosage: 1 TAB, QD
     Route: 065
     Dates: end: 20150616

REACTIONS (8)
  - Suicide attempt [Unknown]
  - Vomiting [Recovered/Resolved]
  - Abdominal pain [Unknown]
  - Adrenal insufficiency [Recovered/Resolved]
  - Hypotension [Unknown]
  - Malaise [Unknown]
  - Intentional overdose [Recovered/Resolved]
  - Somnolence [Recovered/Resolved]

NARRATIVE: CASE EVENT DATE: 201506
